FAERS Safety Report 5441433-4 (Version None)
Quarter: 2007Q3

REPORT INFORMATION
  Report Type: 
  Country: None (occurrence: None)
  Receive Date: 20070828
  Receipt Date: 20070828
  Transmission Date: 20080115
  Serious: Yes (Death)
  Sender: FDA-Public Use
  Company Number: None

PATIENT
  Age: 21 Year
  Sex: Male
  Weight: 56.6996 kg

DRUGS (2)
  1. METHADOSE [Suspect]
     Indication: DEPENDENCE
     Dosage: 40MG ONE TWICE DAILY PO
     Route: 048
     Dates: start: 20061214, end: 20061216
  2. HYDROMORPHONE HCL [Suspect]
     Indication: DEPENDENCE
     Dosage: 2MG TABLETS TAKE ONE 4 TIMES DAY PO
     Route: 048
     Dates: start: 20061214, end: 20061216

REACTIONS (1)
  - RESPIRATORY FAILURE [None]
